FAERS Safety Report 8834590 (Version 5)
Quarter: 2016Q3

REPORT INFORMATION
  Report Type: Spontaneous
  Country: US (occurrence: US)
  Receive Date: 20121010
  Receipt Date: 20160714
  Transmission Date: 20161109
  Serious: Yes (Other)
  Sender: FDA-Public Use
  Company Number: US-009507513-1210USA003229

PATIENT
  Sex: Male
  Weight: 79.37 kg

DRUGS (1)
  1. PROPECIA [Suspect]
     Active Substance: FINASTERIDE
     Indication: ANDROGENETIC ALOPECIA
     Dosage: 1 MG, QD
     Route: 048
     Dates: start: 20060131, end: 201110

REACTIONS (15)
  - Fatigue [Unknown]
  - Upper respiratory tract infection [Unknown]
  - Blood cholesterol increased [Unknown]
  - Cognitive disorder [Not Recovered/Not Resolved]
  - Insomnia [Not Recovered/Not Resolved]
  - Androgen deficiency [Unknown]
  - Stress [Not Recovered/Not Resolved]
  - Skin lesion [Unknown]
  - Erectile dysfunction [Not Recovered/Not Resolved]
  - Malaise [Unknown]
  - Sexual dysfunction [Unknown]
  - Libido decreased [Unknown]
  - Suicidal ideation [Not Recovered/Not Resolved]
  - Generalised anxiety disorder [Not Recovered/Not Resolved]
  - Depression [Not Recovered/Not Resolved]

NARRATIVE: CASE EVENT DATE: 2007
